FAERS Safety Report 19354952 (Version 1)
Quarter: 2021Q2

REPORT INFORMATION
  Report Type: Spontaneous
  Country: GB (occurrence: GB)
  Receive Date: 20210601
  Receipt Date: 20210601
  Transmission Date: 20210717
  Serious: Yes (Other)
  Sender: FDA-Public Use
  Company Number: GB-SUN PHARMACEUTICAL INDUSTRIES LTD-2021R1-298149

PATIENT
  Age: 64 Year
  Sex: Female
  Weight: 75 kg

DRUGS (5)
  1. AMITRIPTYLINE [Suspect]
     Active Substance: AMITRIPTYLINE
     Indication: PRODUCT USED FOR UNKNOWN INDICATION
     Dosage: UNK (50MG?100MG)
     Route: 065
  2. FRUSEMIDE [Concomitant]
     Active Substance: FUROSEMIDE
     Indication: PRODUCT USED FOR UNKNOWN INDICATION
     Dosage: UNK
     Route: 065
     Dates: start: 1992
  3. DIVIGEL [Interacting]
     Active Substance: ESTRADIOL
     Indication: HORMONE REPLACEMENT THERAPY
     Dosage: UNK (2 MG)
     Route: 061
     Dates: start: 201801
  4. LEVOTHYROXINE. [Interacting]
     Active Substance: LEVOTHYROXINE
     Indication: NEUROPATHY PERIPHERAL
     Dosage: UNK
     Route: 048
  5. LEVOTHYROXINE. [Interacting]
     Active Substance: LEVOTHYROXINE
     Indication: SKIN DISORDER
     Dosage: UNK (50 MICROG?100 MICROG)
     Route: 048

REACTIONS (2)
  - Drug interaction [Unknown]
  - Dry mouth [Not Recovered/Not Resolved]
